FAERS Safety Report 11463118 (Version 4)
Quarter: 2017Q1

REPORT INFORMATION
  Report Type: Report from Study
  Country: US (occurrence: US)
  Receive Date: 20150905
  Receipt Date: 20170214
  Transmission Date: 20170428
  Serious: No
  Sender: FDA-Public Use
  Company Number: PHEH2015US017180

PATIENT
  Age: 22 Year
  Sex: Female
  Weight: 99.3 kg

DRUGS (1)
  1. GILENYA [Suspect]
     Active Substance: FINGOLIMOD HYDROCHLORIDE
     Indication: MULTIPLE SCLEROSIS
     Dosage: 0.5 MG, QD
     Route: 048
     Dates: start: 20150826

REACTIONS (9)
  - Blood count abnormal [Unknown]
  - Muscle twitching [Recovered/Resolved]
  - Upper respiratory tract infection [Unknown]
  - Cough [Unknown]
  - Headache [Recovered/Resolved]
  - Anger [Recovered/Resolved]
  - Affect lability [Recovered/Resolved]
  - Oropharyngeal pain [Unknown]
  - Anxiety [Recovered/Resolved]

NARRATIVE: CASE EVENT DATE: 20150826
